FAERS Safety Report 4743097-1 (Version None)
Quarter: 2005Q3

REPORT INFORMATION
  Report Type: 
  Country: None (occurrence: None)
  Receive Date: 20050811
  Receipt Date: 20050801
  Transmission Date: 20060218
  Serious: Yes (Hospitalization)
  Sender: FDA-Public Use
  Company Number: US-AMGEN-US144930

PATIENT
  Sex: Female

DRUGS (2)
  1. NEULASTA [Suspect]
     Indication: CHEMOTHERAPY
     Route: 058
     Dates: start: 20050711
  2. TOPROL-XL [Concomitant]

REACTIONS (8)
  - BONE PAIN [None]
  - DEHYDRATION [None]
  - JAW DISORDER [None]
  - MIGRAINE [None]
  - PHARYNGITIS [None]
  - TOOTH INFECTION [None]
  - VOMITING [None]
  - WHITE BLOOD CELL COUNT DECREASED [None]
